FAERS Safety Report 11090443 (Version 1)
Quarter: 2015Q2

REPORT INFORMATION
  Report Type: Spontaneous
  Country: US (occurrence: None)
  Receive Date: 20150504
  Receipt Date: 20150504
  Transmission Date: 20150821
  Serious: Yes (Other)
  Sender: FDA-Public Use
  Company Number: None

PATIENT
  Age: 41 Year
  Sex: Female
  Weight: 62.14 kg

DRUGS (2)
  1. DAILY VITAMINS [Concomitant]
  2. NASONEX [Suspect]
     Active Substance: MOMETASONE FUROATE
     Indication: SEASONAL ALLERGY
     Route: 055
     Dates: start: 20150501, end: 20150501

REACTIONS (4)
  - Musculoskeletal pain [None]
  - Activities of daily living impaired [None]
  - Neck pain [None]
  - Insomnia [None]

NARRATIVE: CASE EVENT DATE: 20150501
